FAERS Safety Report 11643706 (Version 1)
Quarter: 2015Q4

REPORT INFORMATION
  Report Type: Spontaneous
  Country: US (occurrence: US)
  Receive Date: 20151020
  Receipt Date: 20151020
  Transmission Date: 20160304
  Serious: No
  Sender: FDA-Public Use
  Company Number: US-BAYER-2015-447505

PATIENT
  Age: 11 Year
  Sex: Male
  Weight: 29.48 kg

DRUGS (2)
  1. CLARITIN [Suspect]
     Active Substance: LORATADINE
     Dosage: 2 DF, ONCE
     Route: 048
  2. CLARITIN [Suspect]
     Active Substance: LORATADINE
     Dosage: UNK UNK, PRN
     Route: 048

REACTIONS (1)
  - Accidental exposure to product by child [None]
